FAERS Safety Report 9892282 (Version 1)
Quarter: 2014Q1

REPORT INFORMATION
  Report Type: Spontaneous
  Country: TR (occurrence: TR)
  Receive Date: 20140212
  Receipt Date: 20140212
  Transmission Date: 20141002
  Serious: Yes (Hospitalization)
  Sender: FDA-Public Use
  Company Number: PHHY2014TR012011

PATIENT
  Sex: Female
  Weight: 2.68 kg

DRUGS (2)
  1. VALPROIC ACID [Suspect]
     Dosage: MATERNAL DOSE:400 MG/DAY TWICE DAILY
     Route: 064
  2. LAMOTRIGINE [Suspect]
     Dosage: MATERNAL DOSE: 300 MG, PER DAY
     Route: 064

REACTIONS (7)
  - Decreased activity [Unknown]
  - Grunting [Unknown]
  - Respiratory muscle weakness [Unknown]
  - Hypotonia [Unknown]
  - Feeding disorder neonatal [Recovering/Resolving]
  - Poor sucking reflex [Unknown]
  - Foetal exposure during pregnancy [Unknown]
